FAERS Safety Report 5406544-8 (Version None)
Quarter: 2007Q3

REPORT INFORMATION
  Report Type: 
  Country: None (occurrence: None)
  Receive Date: 20070806
  Receipt Date: 20070725
  Transmission Date: 20080115
  Serious: Yes (Other)
  Sender: FDA-Public Use
  Company Number: BE-PFIZER INC-2007044377

PATIENT
  Age: 67 Year
  Sex: Female

DRUGS (2)
  1. SALAZOPYRINE [Suspect]
  2. SINTROM [Concomitant]

REACTIONS (3)
  - ABDOMINAL PAIN [None]
  - ABDOMINAL PAIN UPPER [None]
  - GENERALISED OEDEMA [None]
